FAERS Safety Report 8358352-6 (Version None)
Quarter: 2012Q2

REPORT INFORMATION
  Report Type: 
  Country: None (occurrence: None)
  Receive Date: 20120514
  Receipt Date: 20120509
  Transmission Date: 20120825
  Serious: Yes (Other)
  Sender: FDA-Public Use
  Company Number: AR-ROCHE-1008737

PATIENT
  Sex: Female

DRUGS (3)
  1. LUCENTIS [Suspect]
     Indication: MACULOPATHY
     Dosage: 1 AMPOULE PER MONTH
     Route: 050
     Dates: start: 20110810
  2. LUCENTIS [Suspect]
     Route: 050
     Dates: start: 20111001
  3. LUCENTIS [Suspect]
     Route: 050
     Dates: start: 20110901

REACTIONS (4)
  - EYE HAEMORRHAGE [None]
  - EYE PAIN [None]
  - FOREIGN BODY IN EYE [None]
  - VISUAL IMPAIRMENT [None]
